FAERS Safety Report 9718812 (Version 1)
Quarter: 2013Q4

REPORT INFORMATION
  Report Type: Spontaneous
  Country: BR (occurrence: BR)
  Receive Date: 20131127
  Receipt Date: 20131127
  Transmission Date: 20140711
  Serious: Yes (Other)
  Sender: FDA-Public Use
  Company Number: BR-GLAXOSMITHKLINE-A1051295A

PATIENT
  Age: 1 Year
  Sex: Male
  Weight: 13 kg

DRUGS (3)
  1. ZINNAT [Suspect]
     Indication: SINUSITIS
     Dosage: 2.5ML TWICE PER DAY
     Route: 048
     Dates: start: 20131107, end: 20131117
  2. ALLEGRA [Suspect]
     Indication: PRODUCT USED FOR UNKNOWN INDICATION
     Dosage: 2.5ML TWICE PER DAY
     Route: 048
     Dates: start: 20131107, end: 20131117
  3. FLUTICASONE [Suspect]
     Indication: PRODUCT USED FOR UNKNOWN INDICATION
     Dosage: 1%DS UNKNOWN
     Route: 045
     Dates: start: 20131107, end: 20131118

REACTIONS (4)
  - Pneumonia [Not Recovered/Not Resolved]
  - Cough [Not Recovered/Not Resolved]
  - Pyrexia [Not Recovered/Not Resolved]
  - Drug ineffective [Recovered/Resolved]
